FAERS Safety Report 17252602 (Version 1)
Quarter: 2020Q1

REPORT INFORMATION
  Report Type: Spontaneous
  Country: CA (occurrence: CA)
  Receive Date: 20200109
  Receipt Date: 20200109
  Transmission Date: 20200409
  Serious: Yes (Other)
  Sender: FDA-Public Use
  Company Number: CA-AMGEN-CANSP2020001910

PATIENT

DRUGS (3)
  1. CALCIUM [Concomitant]
     Active Substance: CALCIUM
     Dosage: UNK INTERNATIONAL UNIT, QD
  2. VITAMINE D [Concomitant]
     Active Substance: CHOLECALCIFEROL
     Dosage: UNK INTERNATIONAL UNIT, QD
  3. PROLIA [Suspect]
     Active Substance: DENOSUMAB
     Indication: OSTEOPOROSIS
     Dosage: 60 MILLIGRAM, Q6MO
     Route: 058

REACTIONS (1)
  - Thyroid adenoma [Unknown]
